FAERS Safety Report 13358529 (Version 2)
Quarter: 2017Q2

REPORT INFORMATION
  Report Type: Spontaneous
  Country: US (occurrence: US)
  Receive Date: 20170322
  Receipt Date: 20170420
  Transmission Date: 20170830
  Serious: Yes (Other)
  Sender: FDA-Public Use
  Company Number: US-009507513-1703USA007685

PATIENT
  Sex: Female

DRUGS (2)
  1. KEYTRUDA [Suspect]
     Active Substance: PEMBROLIZUMAB
     Indication: METASTASES TO LUNG
  2. KEYTRUDA [Suspect]
     Active Substance: PEMBROLIZUMAB
     Indication: SKIN SQUAMOUS CELL CARCINOMA METASTATIC
     Dosage: 2 MG/KG, EVERY 3 WEEKS

REACTIONS (4)
  - Fatigue [Unknown]
  - Off label use [Unknown]
  - Hip fracture [Recovered/Resolved]
  - Neuropathy peripheral [Unknown]
